FAERS Safety Report 8438343-7 (Version None)
Quarter: 2012Q2

REPORT INFORMATION
  Report Type: 
  Country: None (occurrence: None)
  Receive Date: 20120614
  Receipt Date: 20120605
  Transmission Date: 20120825
  Serious: Yes (Hospitalization, Other)
  Sender: FDA-Public Use
  Company Number: US-ABBOTT-12P-163-0917680-00

PATIENT
  Sex: Female
  Weight: 88.076 kg

DRUGS (19)
  1. ENTOCORT EC [Concomitant]
     Indication: PRODUCT USED FOR UNKNOWN INDICATION
     Dosage: 3MG 3 PER ORAL ONCE A DAY
     Route: 048
  2. VITAMIN D [Concomitant]
  3. MULTI-DAY VITAMINS [Concomitant]
     Indication: PRODUCT USED FOR UNKNOWN INDICATION
  4. CIPROFLOXACIN [Concomitant]
     Indication: PRODUCT USED FOR UNKNOWN INDICATION
     Dosage: 500MG 1 PER ORAL TWICE A DAY
     Route: 048
  5. METRONIDAZOLE [Concomitant]
     Indication: PRODUCT USED FOR UNKNOWN INDICATION
     Dosage: 500MG 1 PER ORAL TWICE A DAY
  6. VITAMIN D [Concomitant]
     Indication: PRODUCT USED FOR UNKNOWN INDICATION
  7. PREDNISONE TAB [Concomitant]
     Dosage: 2.5 TABS PER ORAL DAILY FOR 2 WEEKS
     Route: 048
  8. PREDNISONE TAB [Concomitant]
     Dosage: 2 TABS FOR 2 WEEKS
  9. HUMIRA [Suspect]
     Dosage: 80 MG LOADING DOSE
     Dates: start: 20120222, end: 20120222
  10. ACETAMINOPHEN [Concomitant]
     Indication: PRODUCT USED FOR UNKNOWN INDICATION
  11. PREDNISONE TAB [Concomitant]
     Indication: PRODUCT USED FOR UNKNOWN INDICATION
     Dosage: 10MG 3.5 TABS PER ORAL DAILY FOR 2 WEEKS
     Route: 048
  12. LISINOPRIL [Concomitant]
     Indication: HYPERTENSION
     Route: 048
     Dates: end: 20120301
  13. PREDNISONE TAB [Concomitant]
     Dosage: 20 MG 2 PER ORAL ONCE A DAY
     Route: 048
  14. LISINOPRIL [Concomitant]
     Indication: PRODUCT USED FOR UNKNOWN INDICATION
     Route: 048
  15. MACRODANTIN [Concomitant]
     Indication: PRODUCT USED FOR UNKNOWN INDICATION
  16. IRON [Concomitant]
     Indication: PRODUCT USED FOR UNKNOWN INDICATION
  17. HUMIRA [Suspect]
     Indication: CROHN'S DISEASE
     Dosage: 160 MG LOADING DOSE
     Dates: start: 20120208, end: 20120208
  18. HUMIRA [Suspect]
  19. PROBIOTIC [Concomitant]
     Indication: PRODUCT USED FOR UNKNOWN INDICATION

REACTIONS (21)
  - CROHN'S DISEASE [None]
  - URINE OUTPUT INCREASED [None]
  - GASTROINTESTINAL DISORDER [None]
  - WHITE BLOOD CELL COUNT INCREASED [None]
  - IMPAIRED HEALING [None]
  - NAUSEA [None]
  - PAIN [None]
  - ILEUS [None]
  - ABDOMINAL ABSCESS [None]
  - PYREXIA [None]
  - FAECAL VOLUME DECREASED [None]
  - APPENDIX DISORDER [None]
  - HAEMOGLOBIN DECREASED [None]
  - DRUG INEFFECTIVE [None]
  - ASTHENIA [None]
  - INCISIONAL DRAINAGE [None]
  - PROCEDURAL PAIN [None]
  - PERITONEAL ABSCESS [None]
  - DECREASED APPETITE [None]
  - SMALL INTESTINAL OBSTRUCTION [None]
  - ANAEMIA [None]
